FAERS Safety Report 9756647 (Version 1)
Quarter: 2013Q4

REPORT INFORMATION
  Report Type: Spontaneous
  Country: TR (occurrence: TR)
  Receive Date: 20131213
  Receipt Date: 20131213
  Transmission Date: 20140711
  Serious: Yes (Other)
  Sender: FDA-Public Use
  Company Number: TR-ALLERGAN-1319349US

PATIENT
  Age: 15 Year
  Sex: Female

DRUGS (1)
  1. ACULAR 0.5% G?DAMLASI [Suspect]
     Indication: DRY EYE
     Route: 047

REACTIONS (2)
  - Urticaria [Recovered/Resolved]
  - Angioedema [Recovered/Resolved]
